FAERS Safety Report 21927268 (Version 2)
Quarter: 2023Q1

REPORT INFORMATION
  Report Type: Spontaneous
  Country: FR (occurrence: FR)
  Receive Date: 20230130
  Receipt Date: 20230214
  Transmission Date: 20230417
  Serious: Yes (Death)
  Sender: FDA-Public Use
  Company Number: None

PATIENT
  Age: 61 Year
  Sex: Female

DRUGS (4)
  1. FLUCONAZOLE [Interacting]
     Active Substance: FLUCONAZOLE
     Indication: Abdominal infection
     Dosage: 400 MG, 2X/DAY
     Route: 048
     Dates: start: 202212
  2. VENLAFAXINE HCL [Interacting]
     Active Substance: VENLAFAXINE HYDROCHLORIDE
     Indication: Abdominal infection
     Dosage: 1 DOSAGE FORM, QD
     Route: 048
  3. FLAGYL [Interacting]
     Active Substance: METRONIDAZOLE\METRONIDAZOLE HYDROCHLORIDE
     Indication: Abdominal infection
     Dosage: 500 MG, 3X/DAY
     Route: 048
     Dates: start: 202212
  4. CIPROFLOXACIN [Interacting]
     Active Substance: CIPROFLOXACIN
     Indication: Abdominal infection
     Dosage: UNK
     Route: 048
     Dates: start: 202212

REACTIONS (4)
  - Drug interaction [Fatal]
  - Cardiac arrest [Fatal]
  - Ventricular arrhythmia [Fatal]
  - Off label use [Unknown]

NARRATIVE: CASE EVENT DATE: 20221201
